FAERS Safety Report 6357113-7 (Version None)
Quarter: 2009Q3

REPORT INFORMATION
  Report Type: 
  Country: None (occurrence: None)
  Receive Date: 20090915
  Receipt Date: 20090903
  Transmission Date: 20100115
  Serious: Yes (Other)
  Sender: FDA-Public Use
  Company Number: NO-MERCK-0909NOR00005

PATIENT
  Age: 80 Year
  Sex: Male

DRUGS (9)
  1. COZAAR [Suspect]
     Indication: HYPERTENSION
     Route: 048
     Dates: start: 20090505, end: 20090604
  2. FELODIPINE [Concomitant]
     Route: 048
  3. DIAZEPAM [Concomitant]
     Indication: ANXIETY
     Route: 048
  4. ATORVASTATIN CALCIUM [Concomitant]
     Indication: HYPERCHOLESTEROLAEMIA
     Route: 048
  5. MIANSERIN HYDROCHLORIDE [Concomitant]
     Indication: DEPRESSION
     Route: 048
  6. BENDROFLUMETHIAZIDE [Concomitant]
     Route: 048
  7. ASPIRIN AND MAGNESIUM OXIDE [Concomitant]
     Route: 048
  8. CYANOCOBALAMIN [Concomitant]
     Route: 030
  9. METOPROLOL TARTRATE [Concomitant]
     Indication: HYPERTENSION
     Route: 048

REACTIONS (1)
  - HALLUCINATION, VISUAL [None]
